FAERS Safety Report 20383196 (Version 2)
Quarter: 2022Q1

REPORT INFORMATION
  Report Type: Spontaneous
  Country: US (occurrence: US)
  Receive Date: 20220127
  Receipt Date: 20220209
  Transmission Date: 20220423
  Serious: Yes (Other)
  Sender: FDA-Public Use
  Company Number: US-009507513-2201USA007708

PATIENT
  Age: 60 Year
  Sex: Female
  Weight: 51.701 kg

DRUGS (3)
  1. TEMODAR [Suspect]
     Active Substance: TEMOZOLOMIDE
     Dosage: 300 MILLIGRAM, ONCE DAILY, 4 CYCLES
     Route: 048
  2. TEMODAR [Suspect]
     Active Substance: TEMOZOLOMIDE
     Dosage: 200 MILLIGRAM, ONCE DAILY
     Route: 048
  3. TEMODAR [Suspect]
     Active Substance: TEMOZOLOMIDE
     Dosage: 100 MILLIGRAM (3 CAPS), ONCE DAILY
     Route: 048
     Dates: start: 20171018

REACTIONS (30)
  - Malignant neoplasm progression [Unknown]
  - Metastases to bone [Unknown]
  - Thrombocytopenia [Unknown]
  - Metastases to liver [Unknown]
  - Granuloma [Unknown]
  - Back pain [Unknown]
  - Injury [Unknown]
  - Bone lesion [Unknown]
  - Fatigue [Unknown]
  - Drug ineffective [Unknown]
  - Abdominal mass [Unknown]
  - Drug intolerance [Unknown]
  - Headache [Unknown]
  - Photophobia [Unknown]
  - Rash pruritic [Unknown]
  - Contusion [Unknown]
  - Faeces discoloured [Unknown]
  - Abdominal pain lower [Unknown]
  - Headache [Unknown]
  - Nausea [Unknown]
  - Decreased appetite [Unknown]
  - Fatigue [Unknown]
  - Blood glucose increased [Unknown]
  - Blood chromogranin A increased [Unknown]
  - Haematocrit increased [Unknown]
  - Pain in extremity [Unknown]
  - Limb discomfort [Unknown]
  - Neck pain [Unknown]
  - Musculoskeletal chest pain [Unknown]
  - Hepatic lesion [Unknown]

NARRATIVE: CASE EVENT DATE: 20171023
